FAERS Safety Report 4377746-7 (Version None)
Quarter: 2004Q2

REPORT INFORMATION
  Report Type: 
  Country: None (occurrence: None)
  Receive Date: 20040615
  Receipt Date: 20040330
  Transmission Date: 20050107
  Serious: Yes (Hospitalization, Other)
  Sender: FDA-Public Use
  Company Number: FR-AMGEN-US070951

PATIENT
  Sex: Female
  Weight: 61 kg

DRUGS (2)
  1. STEMGEN [Concomitant]
     Indication: PERIPHERAL BLOOD STEM CELL APHERESIS
     Route: 058
     Dates: start: 20040325, end: 20040326
  2. NEUPOGEN [Suspect]
     Indication: PERIPHERAL BLOOD STEM CELL APHERESIS
     Route: 058
     Dates: start: 20040325, end: 20040326

REACTIONS (1)
  - HEPATITIS ACUTE [None]
